FAERS Safety Report 6935134-0 (Version None)
Quarter: 2010Q3

REPORT INFORMATION
  Report Type: 
  Country: None (occurrence: None)
  Receive Date: 20100822
  Receipt Date: 20100813
  Transmission Date: 20110219
  Serious: Yes (Death, Other)
  Sender: FDA-Public Use
  Company Number: PHHY2010US53180

PATIENT
  Sex: Male

DRUGS (8)
  1. SANDOSTATIN [Suspect]
     Indication: POST GASTRIC SURGERY SYNDROME
     Dosage: UNK
     Route: 042
     Dates: start: 20100315
  2. SANDOSTATIN [Suspect]
     Dosage: 400 UG, TID
     Route: 058
     Dates: start: 20060101
  3. PHENERGAN [Concomitant]
     Dosage: 25 MG, PRN
  4. REGLAN [Concomitant]
     Dosage: 10 MG, HS
  5. ASPIRIN [Concomitant]
     Dosage: 325 MG, 2 TABLETS HS
  6. SYMBYAX [Concomitant]
     Dosage: UNK
  7. PROTONIX [Concomitant]
     Dosage: 40 MG, BID
  8. TOPROL-XL [Concomitant]
     Dosage: 25 MG, BID

REACTIONS (5)
  - AORTIC VALVE INCOMPETENCE [None]
  - AORTIC VALVE SCLEROSIS [None]
  - CARDIAC ARREST [None]
  - LEFT VENTRICULAR HYPERTROPHY [None]
  - TRICUSPID VALVE INCOMPETENCE [None]
